FAERS Safety Report 22141758 (Version 12)
Quarter: 2025Q1

REPORT INFORMATION
  Report Type: Spontaneous
  Country: US (occurrence: US)
  Receive Date: 20230327
  Receipt Date: 20250110
  Transmission Date: 20250408
  Serious: No
  Sender: PFIZER
  Company Number: US-PFIZER INC-PV202300048422

PATIENT
  Age: 64 Year
  Sex: Female
  Weight: 97.1 kg

DRUGS (9)
  1. BRAFTOVI [Suspect]
     Active Substance: ENCORAFENIB
     Indication: Metastatic malignant melanoma
     Dosage: 450 MG, DAILY
     Dates: start: 201910
  2. BRAFTOVI [Suspect]
     Active Substance: ENCORAFENIB
     Dosage: 225 MG, 1X/DAY (3 TABS ONCE A DAY)
     Route: 048
     Dates: start: 20201013
  3. BRAFTOVI [Suspect]
     Active Substance: ENCORAFENIB
     Dosage: 75 MG, DAILY (1 TAB DAILY)
     Dates: start: 20210927
  4. BRAFTOVI [Suspect]
     Active Substance: ENCORAFENIB
     Dosage: 225 MG, 1X/DAY (225 MG, ONCE DAILY)
     Route: 048
  5. MEKTOVI [Suspect]
     Active Substance: BINIMETINIB
     Indication: Metastatic malignant melanoma
     Dosage: 45 MG, 2X/DAY
     Dates: start: 201910
  6. MEKTOVI [Suspect]
     Active Substance: BINIMETINIB
     Dosage: 30 MG, 2X/DAY (15MG, 4 TABLETS A DAY (2 IN AM AND 2 IN PM)
     Dates: start: 20201013
  7. MEKTOVI [Suspect]
     Active Substance: BINIMETINIB
     Dosage: 15 MG, 2X/DAY (15 MG, 2 TIMES A DAY)
     Route: 048
     Dates: start: 20210927
  8. MEKTOVI [Suspect]
     Active Substance: BINIMETINIB
     Dosage: 60 MG, 2X/DAY
     Route: 048
  9. MEKTOVI [Suspect]
     Active Substance: BINIMETINIB
     Dosage: 15 MG, 2X/DAY (15 MG, 2 TIMES A DAY)
     Route: 048

REACTIONS (3)
  - Laryngitis [Unknown]
  - Product dose omission issue [Unknown]
  - Off label use [Unknown]

NARRATIVE: CASE EVENT DATE: 20210927
